FAERS Safety Report 8732698 (Version 2)
Quarter: 2012Q4

REPORT INFORMATION
  Report Type: Report from Study
  Country: JP (occurrence: JP)
  Receive Date: 20120820
  Receipt Date: 20120912
  Transmission Date: 20130627
  Serious: Yes (Death, Other)
  Sender: FDA-Public Use
  Company Number: JP-ROCHE-1102871

PATIENT
  Age: 66 None
  Sex: Male

DRUGS (12)
  1. AVASTIN [Suspect]
     Indication: LUNG ADENOCARCINOMA
     Route: 041
     Dates: start: 20100818, end: 20100818
  2. AVASTIN [Suspect]
     Indication: LUNG ADENOCARCINOMA
     Route: 041
     Dates: start: 20100908, end: 20100908
  3. CARBOPLATIN [Concomitant]
     Indication: LUNG ADENOCARCINOMA
     Dosage: Dosage is uncertain.
     Route: 041
     Dates: start: 20100818, end: 20100818
  4. CARBOPLATIN [Concomitant]
     Dosage: Dosage is uncertain.
     Route: 041
     Dates: start: 20100908, end: 20100908
  5. CARBOPLATIN [Concomitant]
     Route: 065
     Dates: end: 20090909
  6. PACLITAXEL [Concomitant]
     Indication: LUNG ADENOCARCINOMA
     Dosage: Dosage is uncertain.
     Route: 041
     Dates: start: 20100818, end: 20100818
  7. PACLITAXEL [Concomitant]
     Dosage: Dosage is uncertain.
     Route: 041
     Dates: start: 20100908, end: 20100908
  8. PACLITAXEL [Concomitant]
     Route: 065
     Dates: end: 20090909
  9. MUCODYNE [Concomitant]
     Route: 048
     Dates: end: 20100917
  10. OMEPRAL [Concomitant]
     Route: 048
     Dates: end: 20100917
  11. HOKUNALIN [Concomitant]
     Route: 062
     Dates: end: 20100917
  12. MOBIC [Concomitant]
     Route: 048
     Dates: end: 20100918

REACTIONS (2)
  - Pneumonia [Fatal]
  - General physical health deterioration [Unknown]
